FAERS Safety Report 10201553 (Version 1)
Quarter: 2014Q2

REPORT INFORMATION
  Report Type: Spontaneous
  Country: US (occurrence: US)
  Receive Date: 20140528
  Receipt Date: 20140528
  Transmission Date: 20141212
  Serious: Yes (Life-Threatening, Hospitalization)
  Sender: FDA-Public Use
  Company Number: US-BAXTER-2014BAX026090

PATIENT
  Age: 72 Year
  Sex: Female
  Weight: 80 kg

DRUGS (3)
  1. CYCLOPHOSPHAMIDE FOR INJECTION, USP [Suspect]
     Indication: VASCULITIS
     Route: 048
     Dates: start: 201401, end: 201403
  2. CYCLOPHOSPHAMIDE FOR INJECTION, USP [Suspect]
     Route: 048
     Dates: start: 201403, end: 20140501
  3. PREDNISONE [Suspect]
     Indication: VASCULITIS
     Dosage: DOSE TITRATED
     Route: 048
     Dates: start: 201401

REACTIONS (2)
  - Thrombosis [Recovering/Resolving]
  - Cellulitis [Recovering/Resolving]
